FAERS Safety Report 6725137-3 (Version None)
Quarter: 2010Q2

REPORT INFORMATION
  Report Type: 
  Country: None (occurrence: None)
  Receive Date: 20100513
  Receipt Date: 20100513
  Transmission Date: 20101027
  Serious: Yes (Death)
  Sender: FDA-Public Use
  Company Number: None

PATIENT
  Sex: Female
  Weight: 51.2 kg

DRUGS (9)
  1. ERLOTINIB HYDROCHLORIDE [Suspect]
     Indication: LUNG ADENOCARCINOMA
     Dates: start: 20100304
  2. PLAVIX [Concomitant]
  3. ANAGRELIDE HCL [Concomitant]
  4. AMLODIPINE [Concomitant]
  5. LEXAPRO [Concomitant]
  6. ALLOPURINOL [Concomitant]
  7. FERROUS SULFATE TAB [Concomitant]
  8. EXFORGE [Concomitant]
  9. TEKTURNA [Concomitant]

REACTIONS (5)
  - ANOXIC ENCEPHALOPATHY [None]
  - CARDIAC ARREST [None]
  - HAEMATEMESIS [None]
  - HAEMOPTYSIS [None]
  - RESPIRATORY DISTRESS [None]
